FAERS Safety Report 4750156-6 (Version None)
Quarter: 2005Q3

REPORT INFORMATION
  Report Type: 
  Country: None (occurrence: None)
  Receive Date: 20050819
  Receipt Date: 20050808
  Transmission Date: 20060218
  Serious: Yes (Life-Threatening, Hospitalization, Other)
  Sender: FDA-Public Use
  Company Number: 2005090654

PATIENT
  Age: 50 Year
  Sex: Male

DRUGS (4)
  1. GEODON [Suspect]
     Indication: AGITATION
     Dosage: 20 MG (10 MG), INTRAMUSCULAR
     Route: 030
  2. PROPOFOL [Suspect]
     Indication: AGITATION
     Dosage: INTRAVENOUS
     Route: 042
  3. VERSED [Suspect]
     Indication: AGITATION
     Dosage: 2.5, INTRAMUSCULAR
     Route: 030
  4. ALL OTHER THERAPEUTIC PRODUCTS (ALL OTHER THERAPEUTIC PRODUCTS) [Concomitant]

REACTIONS (2)
  - APNOEA [None]
  - RESPIRATORY ARREST [None]
